FAERS Safety Report 16380325 (Version 1)
Quarter: 2019Q2

REPORT INFORMATION
  Report Type: Spontaneous
  Country: KR (occurrence: KR)
  Receive Date: 20190601
  Receipt Date: 20190601
  Transmission Date: 20190711
  Serious: Yes (Hospitalization)
  Sender: FDA-Public Use
  Company Number: KR-009507513-1904KOR008377

PATIENT
  Sex: Female

DRUGS (6)
  1. SODIUM CHLORIDE. [Concomitant]
     Active Substance: SODIUM CHLORIDE
     Dosage: QUANTITY: 1, DAYS: 1
     Dates: start: 20190326
  2. SODIUM CHLORIDE. [Concomitant]
     Active Substance: SODIUM CHLORIDE
     Dosage: QUANTITY: 1, DAYS: 1
     Dates: start: 20190326
  3. TYLENOL [Concomitant]
     Active Substance: ACETAMINOPHEN
     Dosage: QUANTITY: 1, DAYS: 1
     Route: 048
     Dates: start: 20190326
  4. KEYTRUDA [Suspect]
     Active Substance: PEMBROLIZUMAB
     Dosage: QUANTITY: 2, DAYS: 2
     Dates: start: 20190423, end: 20190514
  5. KEYTRUDA [Suspect]
     Active Substance: PEMBROLIZUMAB
     Indication: CERVIX CARCINOMA RECURRENT
     Dosage: QUANTITY: 2, DAYS: 1
     Dates: start: 20190326
  6. SODIUM CHLORIDE. [Concomitant]
     Active Substance: SODIUM CHLORIDE
     Dosage: QUANTITY: 1, DAYS: 3
     Dates: start: 20190325, end: 20190326

REACTIONS (5)
  - Adverse event [Unknown]
  - Product use in unapproved indication [Unknown]
  - Inappropriate schedule of product administration [Unknown]
  - Ureteral stent insertion [Unknown]
  - Ureteral stent removal [Unknown]

NARRATIVE: CASE EVENT DATE: 2019
